FAERS Safety Report 25336905 (Version 3)
Quarter: 2025Q4

REPORT INFORMATION
  Report Type: Spontaneous
  Country: US (occurrence: US)
  Receive Date: 20250520
  Receipt Date: 20251205
  Transmission Date: 20260118
  Serious: No
  Sender: BAUSCH AND LOMB
  Company Number: US-BAUSCHBL-2025BNL008539

PATIENT
  Age: 66 Year
  Sex: Female

DRUGS (5)
  1. XIIDRA [Suspect]
     Active Substance: LIFITEGRAST
     Indication: Dry eye
     Route: 047
     Dates: start: 202403
  2. XIIDRA [Suspect]
     Active Substance: LIFITEGRAST
     Route: 047
  3. XIIDRA [Suspect]
     Active Substance: LIFITEGRAST
     Route: 047
  4. BLINK GEL TEARS [Suspect]
     Active Substance: POLYETHYLENE GLYCOL 400
     Indication: Dry eye
     Route: 047
  5. BLINK GEL TEARS [Suspect]
     Active Substance: POLYETHYLENE GLYCOL 400

REACTIONS (11)
  - Dysgeusia [Unknown]
  - Eye pruritus [Unknown]
  - Rash [Unknown]
  - Drug ineffective [Unknown]
  - Wrong dose [Unknown]
  - Product use complaint [Unknown]
  - Product container issue [Unknown]
  - Product closure removal difficult [Unknown]
  - Product delivery mechanism issue [Unknown]
  - Product size issue [Unknown]
  - Product label issue [Unknown]
